FAERS Safety Report 20573428 (Version 2)
Quarter: 2022Q1

REPORT INFORMATION
  Report Type: Spontaneous
  Country: US (occurrence: US)
  Receive Date: 20220309
  Receipt Date: 20220314
  Transmission Date: 20220424
  Serious: No
  Sender: FDA-Public Use
  Company Number: US-PFIZER INC-202100935067

PATIENT
  Age: 39 Year
  Sex: Male

DRUGS (2)
  1. XELJANZ XR [Interacting]
     Active Substance: TOFACITINIB CITRATE
     Dosage: 11 MG
     Dates: start: 20210718
  2. XELJANZ XR [Interacting]
     Active Substance: TOFACITINIB CITRATE
     Dosage: 11 MG
     Dates: start: 20210719

REACTIONS (3)
  - Headache [Unknown]
  - Fatigue [Unknown]
  - Drug interaction [Unknown]
